FAERS Safety Report 5411550-3 (Version None)
Quarter: 2007Q3

REPORT INFORMATION
  Report Type: 
  Country: None (occurrence: None)
  Receive Date: 20070810
  Receipt Date: 20070801
  Transmission Date: 20080115
  Serious: Yes (Hospitalization)
  Sender: FDA-Public Use
  Company Number: DE-BAUSCH-2006BL005879

PATIENT
  Age: 64 Year
  Sex: Male

DRUGS (16)
  1. PILOMANN 0.5% AUGENTROPFEN [Suspect]
     Indication: GLAUCOMA
     Route: 047
     Dates: start: 19981029, end: 20050411
  2. PILOMANN 0.5% AUGENTROPFEN [Suspect]
     Route: 047
     Dates: start: 20050503, end: 20051208
  3. PILOMANN 0.5% AUGENTROPFEN [Suspect]
     Route: 047
     Dates: start: 20060904, end: 20060905
  4. NORMOGLAUCON AUGENTROPFEN [Suspect]
     Indication: GLAUCOMA
     Route: 047
     Dates: start: 20051209, end: 20060329
  5. NORMOGLAUCON AUGENTROPFEN [Suspect]
     Route: 047
     Dates: start: 20060425, end: 20060430
  6. NORMOGLAUCON AUGENTROPFEN [Suspect]
     Route: 047
     Dates: start: 20060501, end: 20060501
  7. NORMOGLAUCON MITE AUGENTROPFEN [Suspect]
     Indication: GLAUCOMA
     Route: 047
     Dates: start: 20060330, end: 20060424
  8. TRAVATAN [Suspect]
     Indication: GLAUCOMA
     Route: 047
     Dates: start: 20050412, end: 20050502
  9. MESTINON /CAN/ [Concomitant]
     Dates: start: 20060401, end: 20070501
  10. METHYLPREDNISOLONE [Concomitant]
     Dates: start: 20060401
  11. NEXIUM [Concomitant]
     Dates: start: 20060401
  12. VIGANTOLETTEN ^BAYER^ [Concomitant]
     Indication: PROPHYLAXIS AGAINST GASTROINTESTINAL ULCER
     Dates: start: 20060401
  13. CALCIUM CHLORIDE [Concomitant]
     Dates: start: 20060401
  14. CORTISONE ACETATE TAB [Concomitant]
     Dates: start: 20060601, end: 20060801
  15. CORTISONE ACETATE TAB [Concomitant]
     Dates: end: 20061101
  16. CORTISONE ACETATE TAB [Concomitant]
     Dates: start: 20061101

REACTIONS (3)
  - EYELID PTOSIS [None]
  - OCULAR MYASTHENIA [None]
  - TREMOR [None]
